FAERS Safety Report 22130834 (Version 1)
Quarter: 2023Q1

REPORT INFORMATION
  Report Type: Spontaneous
  Country: US (occurrence: US)
  Receive Date: 20230323
  Receipt Date: 20230323
  Transmission Date: 20230418
  Serious: Yes (Other)
  Sender: FDA-Public Use
  Company Number: None

PATIENT
  Age: 16 Year
  Sex: Male
  Weight: 88 kg

DRUGS (33)
  1. DEXMEDETOMIDINE [Suspect]
     Active Substance: DEXMEDETOMIDINE
     Indication: Analgesic therapy
     Dosage: 0.3 (MCG/KG/H) 2 HR
     Route: 065
  2. DEXMEDETOMIDINE [Suspect]
     Active Substance: DEXMEDETOMIDINE
     Dosage: 0.3 MCG/KG/H 3 HR
     Route: 065
  3. DEXMEDETOMIDINE [Suspect]
     Active Substance: DEXMEDETOMIDINE
     Dosage: 0.2 MCG/KG/H 4 HR
     Route: 065
  4. PROPOFOL [Concomitant]
     Active Substance: PROPOFOL
     Indication: General anaesthesia
     Dosage: 150-174 MCG/KG/MIN AT 1 HR
     Route: 065
  5. PROPOFOL [Concomitant]
     Active Substance: PROPOFOL
     Dosage: 150-175 MCG/KG/MIN AT 2 HR
     Route: 065
  6. PROPOFOL [Concomitant]
     Active Substance: PROPOFOL
     Dosage: 150 MCG/KG/MIN AT 3 HR
     Route: 065
  7. PROPOFOL [Concomitant]
     Active Substance: PROPOFOL
     Dosage: 150 MCG/KG/MIN AT 4 HR
     Route: 065
  8. PROPOFOL [Concomitant]
     Active Substance: PROPOFOL
     Dosage: 150 MCG/KG/MIN AT 5 HR
     Route: 065
  9. PROPOFOL [Concomitant]
     Active Substance: PROPOFOL
     Dosage: 80-150 MCG/KG/MIN AT 6 HR
     Route: 065
  10. PROPOFOL [Concomitant]
     Active Substance: PROPOFOL
     Dosage: 80 MCG/KG/MIN AT 7 HR
     Route: 065
  11. PROPOFOL [Concomitant]
     Active Substance: PROPOFOL
     Dosage: ON INDUCTION
     Route: 065
  12. PROPOFOL [Concomitant]
     Active Substance: PROPOFOL
     Dosage: 1ST HOUR
     Route: 065
  13. SEVOFLURANE [Concomitant]
     Active Substance: SEVOFLURANE
     Indication: General anaesthesia
     Dosage: 0.2-0.6 AT 1 HR
     Route: 065
  14. SEVOFLURANE [Concomitant]
     Active Substance: SEVOFLURANE
     Dosage: 0.4-0.5 AT 2 HR
     Route: 065
  15. SEVOFLURANE [Concomitant]
     Active Substance: SEVOFLURANE
     Dosage: 0.2-0.3 AT 3 HR
     Route: 065
  16. SEVOFLURANE [Concomitant]
     Active Substance: SEVOFLURANE
     Dosage: 0.1 AT 4 HR
     Route: 065
  17. SEVOFLURANE [Concomitant]
     Active Substance: SEVOFLURANE
     Dosage: 0.3-0.5 AT 5 HR
     Route: 065
  18. SEVOFLURANE [Concomitant]
     Active Substance: SEVOFLURANE
     Dosage: 0.5-0.6 AT 6 HR
     Route: 065
  19. SEVOFLURANE [Concomitant]
     Active Substance: SEVOFLURANE
     Dosage: 0.6-0.8 AT 7 HR
     Route: 065
  20. SEVOFLURANE [Concomitant]
     Active Substance: SEVOFLURANE
     Dosage: 0.2-0.7 AT 8 HR
     Route: 065
  21. REMIFENTANIL [Concomitant]
     Active Substance: REMIFENTANIL
     Indication: General anaesthesia
     Dosage: 0.2 MC/KG/H ON INDUCTION
     Route: 065
  22. REMIFENTANIL [Concomitant]
     Active Substance: REMIFENTANIL
     Dosage: 0.25-0.3 MC/KG/H AT 1ST HR
     Route: 065
  23. REMIFENTANIL [Concomitant]
     Active Substance: REMIFENTANIL
     Dosage: 0.3 MC/KG/H AT 2 HR
     Route: 065
  24. REMIFENTANIL [Concomitant]
     Active Substance: REMIFENTANIL
     Dosage: 0.3 MC/KG/H AT 4 HR
     Route: 065
  25. REMIFENTANIL [Concomitant]
     Active Substance: REMIFENTANIL
     Dosage: 0.3 MC/KG/H AT 5 HR
     Route: 065
  26. REMIFENTANIL [Concomitant]
     Active Substance: REMIFENTANIL
     Dosage: 0.3 MC/KG/H AT 6 HR
     Route: 065
  27. REMIFENTANIL [Concomitant]
     Active Substance: REMIFENTANIL
     Dosage: 0.3 MC/KG/H AT 7 HR
     Route: 065
  28. MIDAZOLAM [Concomitant]
     Active Substance: MIDAZOLAM
     Indication: Product used for unknown indication
     Route: 065
  29. ROCURONIUM [Concomitant]
     Active Substance: ROCURONIUM BROMIDE
     Indication: Product used for unknown indication
     Route: 065
  30. ROCURONIUM [Concomitant]
     Active Substance: ROCURONIUM BROMIDE
     Route: 065
  31. FENTANYL [Concomitant]
     Active Substance: FENTANYL
     Indication: Product used for unknown indication
     Dosage: INDUCTION
     Route: 065
  32. FENTANYL [Concomitant]
     Active Substance: FENTANYL
     Dosage: 1ST HOUR
     Route: 065
  33. LIDOCAINE [Concomitant]
     Active Substance: LIDOCAINE
     Indication: Product used for unknown indication
     Route: 065

REACTIONS (1)
  - Diabetes insipidus [Unknown]
